FAERS Safety Report 8296683-9 (Version None)
Quarter: 2012Q2

REPORT INFORMATION
  Report Type: 
  Country: None (occurrence: None)
  Receive Date: 20120418
  Receipt Date: 20120410
  Transmission Date: 20120825
  Serious: No
  Sender: FDA-Public Use
  Company Number: US-BAXTER-2012BAX000320

PATIENT
  Sex: Female
  Weight: 88.53 kg

DRUGS (9)
  1. DIANEAL [Suspect]
  2. SENSIPAR [Concomitant]
     Route: 065
  3. COREG [Concomitant]
     Route: 065
  4. RENAGEL [Concomitant]
     Route: 065
  5. DIANEAL [Suspect]
  6. DIANEAL [Suspect]
     Route: 033
  7. EXTRANEAL [Suspect]
     Indication: PERITONEAL DIALYSIS
     Route: 033
  8. EPOGEN [Concomitant]
     Route: 065
  9. CALCITRIOL [Concomitant]
     Route: 065

REACTIONS (1)
  - ABDOMINAL DISCOMFORT [None]
